FAERS Safety Report 5050269-8 (Version None)
Quarter: 2006Q3

REPORT INFORMATION
  Report Type: 
  Country: None (occurrence: None)
  Receive Date: 20060713
  Receipt Date: 20060629
  Transmission Date: 20061208
  Serious: Yes (Hospitalization)
  Sender: FDA-Public Use
  Company Number: US-AMGEN-US184736

PATIENT
  Sex: Female

DRUGS (2)
  1. ARANESP [Suspect]
     Indication: ANAEMIA
     Dates: start: 20040101, end: 20060101
  2. INTRON A [Concomitant]

REACTIONS (8)
  - DIZZINESS [None]
  - FATIGUE [None]
  - HAEMATURIA [None]
  - MALAISE [None]
  - NAUSEA [None]
  - RECTAL HAEMORRHAGE [None]
  - RENAL FAILURE [None]
  - SKIN DISCOLOURATION [None]
